FAERS Safety Report 4678634-9 (Version None)
Quarter: 2005Q2

REPORT INFORMATION
  Report Type: 
  Country: None (occurrence: None)
  Receive Date: 20050527
  Receipt Date: 20050518
  Transmission Date: 20051028
  Serious: Yes (Other)
  Sender: FDA-Public Use
  Company Number: 2005075809

PATIENT
  Age: 68 Year
  Sex: Female
  Weight: 59 kg

DRUGS (2)
  1. FLUCONAZOLE [Suspect]
     Indication: MYCOSIS FUNGOIDES
     Dosage: 1 TSP/DAY, ORAL
     Route: 048
     Dates: start: 20050310, end: 20050316
  2. PEPSANE (DIMETICONE GUAIAZULENE) [Concomitant]

REACTIONS (5)
  - BURN OESOPHAGEAL [None]
  - DYSGEUSIA [None]
  - ERYTHEMA [None]
  - MUCOSAL DISCOLOURATION [None]
  - SALIVA ALTERED [None]
